FAERS Safety Report 16023458 (Version 2)
Quarter: 2019Q4

REPORT INFORMATION
  Report Type: Spontaneous
  Country: NL (occurrence: NL)
  Receive Date: 20190301
  Receipt Date: 20191106
  Transmission Date: 20200122
  Serious: Yes (Hospitalization, Other)
  Sender: FDA-Public Use
  Company Number: NL-PFIZER INC-2019089669

PATIENT
  Age: 53 Year
  Sex: Female

DRUGS (1)
  1. CYKLOKAPRON [Suspect]
     Active Substance: TRANEXAMIC ACID
     Dosage: UNK

REACTIONS (14)
  - Wrong product administered [Unknown]
  - Product packaging confusion [Unknown]
  - Product label confusion [Unknown]
  - Muscular weakness [Unknown]
  - Haemodynamic instability [Unknown]
  - Impaired quality of life [Unknown]
  - Back pain [Unknown]
  - Spinal compression fracture [Unknown]
  - Procedural pain [Unknown]
  - PCO2 abnormal [Unknown]
  - Myoclonus [Unknown]
  - Heart rate irregular [Unknown]
  - Incorrect route of product administration [Unknown]
  - Blood pressure fluctuation [Unknown]
